FAERS Safety Report 4367409-6 (Version None)
Quarter: 2004Q2

REPORT INFORMATION
  Report Type: 
  Country: None (occurrence: None)
  Receive Date: 20040528
  Receipt Date: 20040528
  Transmission Date: 20050107
  Serious: Yes (Life-Threatening)
  Sender: FDA-Public Use
  Company Number: None

PATIENT
  Sex: Male
  Weight: 109 kg

DRUGS (2)
  1. LINEZOLID 600 MG [Suspect]
     Indication: LOCALISED INFECTION
     Dosage: 600 MG BID ORAL
     Route: 048
     Dates: start: 20040430, end: 20040527
  2. LINEZOLID 600 MG [Suspect]
     Indication: STAPHYLOCOCCAL INFECTION
     Dosage: 600 MG BID ORAL
     Route: 048
     Dates: start: 20040430, end: 20040527

REACTIONS (1)
  - PANCYTOPENIA [None]
